FAERS Safety Report 8380142-9 (Version None)
Quarter: 2012Q2

REPORT INFORMATION
  Report Type: 
  Country: None (occurrence: None)
  Receive Date: 20120523
  Receipt Date: 20120409
  Transmission Date: 20120825
  Serious: No
  Sender: FDA-Public Use
  Company Number: US-PFIZER INC-2012089065

PATIENT
  Sex: Male

DRUGS (1)
  1. NARDIL [Suspect]
     Indication: BIPOLAR II DISORDER
     Dosage: 45 MG, PER DAY

REACTIONS (3)
  - DRUG INEFFECTIVE [None]
  - INFLUENZA [None]
  - DEPRESSION [None]
